FAERS Safety Report 6235775-2 (Version None)
Quarter: 2009Q2

REPORT INFORMATION
  Report Type: 
  Country: None (occurrence: None)
  Receive Date: 20090617
  Receipt Date: 20090617
  Transmission Date: 20091009
  Serious: No
  Sender: FDA-Public Use
  Company Number: None

PATIENT
  Age: 47 Year
  Sex: Male
  Weight: 138.8007 kg

DRUGS (1)
  1. ZICAM NASAL SPRAY [Suspect]
     Indication: NASOPHARYNGITIS
     Dosage: 3 SPRAYS 12 INHAL
     Route: 055
     Dates: start: 20090211, end: 20090215

REACTIONS (1)
  - HYPOSMIA [None]
